FAERS Safety Report 7972156-5 (Version None)
Quarter: 2011Q4

REPORT INFORMATION
  Report Type: 
  Country: None (occurrence: None)
  Receive Date: 20111212
  Receipt Date: 20111208
  Transmission Date: 20120403
  Serious: Yes (Death, Hospitalization, Other)
  Sender: FDA-Public Use
  Company Number: US-MERCK-1005USA02715

PATIENT
  Age: 66 Year
  Sex: Female
  Weight: 69 kg

DRUGS (3)
  1. FOSAMAX [Suspect]
     Indication: OSTEOPOROSIS
     Route: 048
     Dates: start: 20051031, end: 20070101
  2. FOSAMAX PLUS D [Suspect]
     Indication: OSTEOPOROSIS
     Route: 048
     Dates: start: 20040401, end: 20080505
  3. FOSAMAX [Suspect]
     Route: 048
     Dates: start: 20000621

REACTIONS (56)
  - ATRIAL FIBRILLATION [None]
  - VAGINAL DISORDER [None]
  - HOSPITALISATION [None]
  - CARDIAC INFECTION [None]
  - DYSPEPSIA [None]
  - NECK PAIN [None]
  - TOOTH DISORDER [None]
  - ORAL PAIN [None]
  - RENAL DISORDER [None]
  - KLEBSIELLA INFECTION [None]
  - FRACTURE DELAYED UNION [None]
  - CARDIAC MURMUR [None]
  - BONE PAIN [None]
  - FALL [None]
  - DENTAL CARIES [None]
  - OSTEOARTHRITIS [None]
  - RESPIRATORY TRACT INFECTION [None]
  - RESPIRATORY DISORDER [None]
  - ARTHRALGIA [None]
  - ACUTE MYOCARDIAL INFARCTION [None]
  - CEREBRAL ISCHAEMIA [None]
  - RIB FRACTURE [None]
  - PAIN IN EXTREMITY [None]
  - METABOLIC DISORDER [None]
  - MASTOIDITIS [None]
  - LOW TURNOVER OSTEOPATHY [None]
  - SYNOVITIS [None]
  - MYOCARDIAL INFARCTION [None]
  - INFECTION [None]
  - LOSS OF CONSCIOUSNESS [None]
  - CORONARY ARTERY DISEASE [None]
  - ADVERSE DRUG REACTION [None]
  - DIABETIC NEUROPATHY [None]
  - SCIATICA [None]
  - FOOT FRACTURE [None]
  - ARTHROPATHY [None]
  - DIABETES MELLITUS [None]
  - BLADDER DISORDER [None]
  - HEAD INJURY [None]
  - DIZZINESS [None]
  - MUSCULOSKELETAL DISORDER [None]
  - URINARY TRACT INFECTION [None]
  - HYPERSENSITIVITY [None]
  - BACK PAIN [None]
  - CARDIAC DISORDER [None]
  - FEMUR FRACTURE [None]
  - BRONCHITIS [None]
  - WRIST FRACTURE [None]
  - DEVICE FAILURE [None]
  - DEPRESSION [None]
  - PSORIASIS [None]
  - LUNG INFECTION [None]
  - SYNCOPE [None]
  - MUSCULOSKELETAL PAIN [None]
  - LABILE HYPERTENSION [None]
  - CHRONIC OBSTRUCTIVE PULMONARY DISEASE [None]
